FAERS Safety Report 5283898-7 (Version None)
Quarter: 2007Q2

REPORT INFORMATION
  Report Type: 
  Country: None (occurrence: None)
  Receive Date: 20070402
  Receipt Date: 20070323
  Transmission Date: 20071010
  Serious: Yes (Death, Other)
  Sender: FDA-Public Use
  Company Number: US-MERCK-0611USA06225

PATIENT
  Age: 54 Year
  Sex: Male

DRUGS (1)
  1. FOSAMAX [Suspect]
     Route: 048

REACTIONS (5)
  - ANXIETY [None]
  - DEATH [None]
  - OSTEOMYELITIS [None]
  - OSTEONECROSIS [None]
  - PROSTATE CANCER [None]
